FAERS Safety Report 6207308-8 (Version None)
Quarter: 2009Q2

REPORT INFORMATION
  Report Type: 
  Country: None (occurrence: None)
  Receive Date: 20090527
  Receipt Date: 20090527
  Transmission Date: 20091009
  Serious: No
  Sender: FDA-Public Use
  Company Number: None

PATIENT
  Age: 15 Year
  Sex: Male
  Weight: 77.1115 kg

DRUGS (1)
  1. RISPERIDONE [Suspect]
     Dosage: 1 TABLET DAILY
     Dates: start: 20050101, end: 20090524

REACTIONS (2)
  - BREAST DISORDER MALE [None]
  - GASTROINTESTINAL DISORDER [None]
